FAERS Safety Report 20186112 (Version 1)
Quarter: 2021Q4

REPORT INFORMATION
  Report Type: Spontaneous
  Country: FR (occurrence: FR)
  Receive Date: 20211215
  Receipt Date: 20211215
  Transmission Date: 20220304
  Serious: Yes (Hospitalization, Congenital Anomaly, Other)
  Sender: FDA-Public Use
  Company Number: FR-ABBVIE-21K-056-4196865-00

PATIENT
  Sex: Male

DRUGS (3)
  1. VALPROATE SODIUM [Suspect]
     Active Substance: VALPROATE SODIUM
     Indication: Maternal exposure timing unspecified
     Route: 064
  2. VALPROATE SODIUM [Suspect]
     Active Substance: VALPROATE SODIUM
     Indication: Maternal exposure timing unspecified
     Route: 064
  3. FOLIC ACID [Concomitant]
     Active Substance: FOLIC ACID
     Indication: Maternal exposure timing unspecified

REACTIONS (53)
  - Ear malformation [Not Recovered/Not Resolved]
  - Dysmorphism [Not Recovered/Not Resolved]
  - Drug withdrawal syndrome neonatal [Unknown]
  - Polydactyly [Not Recovered/Not Resolved]
  - Talipes [Not Recovered/Not Resolved]
  - Speech disorder developmental [Unknown]
  - Pharyngitis [Unknown]
  - Ear, nose and throat disorder [Unknown]
  - Oropharyngeal discomfort [Unknown]
  - Ear infection [Unknown]
  - Bronchitis [Unknown]
  - Cough [Unknown]
  - Angina pectoris [Unknown]
  - Rhinitis [Unknown]
  - Cyst [Unknown]
  - Enuresis [Unknown]
  - Hypermetropia [Unknown]
  - Hydrocele [Unknown]
  - Congenital inguinal hernia [Unknown]
  - Speech disorder developmental [Unknown]
  - Cardiac murmur [Unknown]
  - Disturbance in attention [Unknown]
  - Memory impairment [Unknown]
  - Congenital anomaly [Unknown]
  - Psychomotor skills impaired [Unknown]
  - Developmental coordination disorder [Unknown]
  - Dysgraphia [Unknown]
  - Conductive deafness [Unknown]
  - Intellectual disability [Unknown]
  - Agitation [Unknown]
  - Gait disturbance [Unknown]
  - Laryngitis [Unknown]
  - Cardiac murmur [Unknown]
  - Disorientation [Unknown]
  - Memory impairment [Unknown]
  - Speech disorder developmental [Unknown]
  - Anxiety [Unknown]
  - Disturbance in social behaviour [Unknown]
  - Psychomotor hyperactivity [Unknown]
  - Joint laxity [Unknown]
  - Scoliosis [Unknown]
  - Arachnodactyly [Unknown]
  - Attention deficit hyperactivity disorder [Unknown]
  - Learning disorder [Unknown]
  - Rhinitis allergic [Unknown]
  - Eyelid oedema [Unknown]
  - Urinary tract infection [Unknown]
  - Testicular disorder [Unknown]
  - Back pain [Unknown]
  - Hypotonia [Unknown]
  - Hypospadias [Not Recovered/Not Resolved]
  - Foetal exposure during pregnancy [Unknown]
  - Exposure via breast milk [Unknown]

NARRATIVE: CASE EVENT DATE: 19970424
